FAERS Safety Report 15907956 (Version 1)
Quarter: 2019Q1

REPORT INFORMATION
  Report Type: Spontaneous
  Country: CN (occurrence: CN)
  Receive Date: 20190204
  Receipt Date: 20190204
  Transmission Date: 20190417
  Serious: Yes (Hospitalization)
  Sender: FDA-Public Use
  Company Number: CN-PFIZER INC-2019038853

PATIENT
  Age: 62 Year
  Sex: Male
  Weight: 70 kg

DRUGS (1)
  1. LIPITOR [Suspect]
     Active Substance: ATORVASTATIN CALCIUM
     Indication: CEREBRAL INFARCTION
     Dosage: 20 MG, 1X/DAY
     Route: 048
     Dates: start: 20181116, end: 20181123

REACTIONS (6)
  - Hepatic function abnormal [Not Recovered/Not Resolved]
  - Decreased appetite [Recovered/Resolved]
  - Jaundice [Recovered/Resolved]
  - Nausea [Recovered/Resolved]
  - Abdominal distension [Recovered/Resolved]
  - Muscular weakness [Recovered/Resolved]

NARRATIVE: CASE EVENT DATE: 20181121
